FAERS Safety Report 23428737 (Version 1)
Quarter: 2024Q1

REPORT INFORMATION
  Report Type: Report from Study
  Country: TR (occurrence: TR)
  Receive Date: 20240122
  Receipt Date: 20240122
  Transmission Date: 20240410
  Serious: Yes (Other)
  Sender: FDA-Public Use
  Company Number: TR-PFIZER INC-PV202200043258

PATIENT
  Age: 21 Year
  Sex: Female

DRUGS (1)
  1. ABROCITINIB [Suspect]
     Active Substance: ABROCITINIB
     Indication: Dermatitis atopic
     Dosage: 200 MG, 1X/DAY
     Route: 048
     Dates: start: 20220501

REACTIONS (12)
  - Neutropenia [Unknown]
  - Blood urea decreased [Unknown]
  - Blood urea decreased [Unknown]
  - Neutrophil count increased [Unknown]
  - Neutrophil percentage increased [Unknown]
  - Lymphocyte percentage decreased [Unknown]
  - Lymphocyte count decreased [Unknown]
  - Monocyte percentage increased [Unknown]
  - Monocyte count increased [Unknown]
  - Mean platelet volume decreased [Unknown]
  - Procalcitonin decreased [Unknown]
  - Platelet distribution width decreased [Unknown]
